FAERS Safety Report 4760224-0 (Version None)
Quarter: 2005Q3

REPORT INFORMATION
  Report Type: 
  Country: None (occurrence: None)
  Receive Date: 20050902
  Receipt Date: 20050826
  Transmission Date: 20060218
  Serious: Yes (Hospitalization)
  Sender: FDA-Public Use
  Company Number: US-JNJFOC-20050806393

PATIENT
  Age: 8 Month
  Sex: Male
  Weight: 10.89 kg

DRUGS (2)
  1. TYLENOL [Suspect]
  2. TYLENOL [Suspect]
     Indication: TEETHING

REACTIONS (2)
  - CONVULSION [None]
  - RESPIRATORY ARREST [None]
